FAERS Safety Report 24972405 (Version 1)
Quarter: 2025Q1

REPORT INFORMATION
  Report Type: Report from Study
  Country: US (occurrence: US)
  Receive Date: 20250215
  Receipt Date: 20250215
  Transmission Date: 20250409
  Serious: No
  Sender: AMNEAL
  Company Number: US-AMNEAL PHARMACEUTICALS-2024-AMRX-02195

PATIENT
  Age: 84 Year
  Sex: Male
  Weight: 104 kg

DRUGS (17)
  1. CARBIDOPA\LEVODOPA [Suspect]
     Active Substance: CARBIDOPA\LEVODOPA
     Indication: Parkinson^s disease
     Route: 048
     Dates: start: 20230412, end: 20240312
  2. ADVAIR HFA [Concomitant]
     Active Substance: FLUTICASONE PROPIONATE\SALMETEROL XINAFOATE
     Indication: Product used for unknown indication
     Dosage: HFA 230-21 MCG/ACTUATLON (TWO PUFFS 2 (TWO) TIMES PER DAY)
     Dates: start: 20230212
  3. ALBUTEROL SULFATE [Concomitant]
     Active Substance: ALBUTEROL SULFATE
     Indication: Product used for unknown indication
     Dosage: 90 MCG/ACTUATLON INHALER, LNHALER 2 PUFFS EVERY 6 (SIX) HOURS IF NEEDED
     Route: 065
     Dates: start: 20231125
  4. ASPIRIN [Concomitant]
     Active Substance: ASPIRIN
     Indication: Product used for unknown indication
     Route: 048
  5. CHOLECALCIFEROL [Concomitant]
     Active Substance: CHOLECALCIFEROL
     Indication: Product used for unknown indication
     Route: 048
  6. ALBUTEROL SULFATE\IPRATROPIUM BROMIDE [Concomitant]
     Active Substance: ALBUTEROL SULFATE\IPRATROPIUM BROMIDE
     Indication: Product used for unknown indication
     Dates: start: 20220928
  7. LOSARTAN [Concomitant]
     Active Substance: LOSARTAN
     Indication: Product used for unknown indication
     Dosage: (25 MG) 1 TABLETS, QD
     Route: 048
     Dates: start: 20210823
  8. METFORMIN [Concomitant]
     Active Substance: METFORMIN HYDROCHLORIDE
     Indication: Product used for unknown indication
     Dosage: (500 MG) 1 TABLETS, QD (EVERY EVENING)
     Route: 048
     Dates: start: 20221229
  9. MONTELUKAST [Concomitant]
     Active Substance: MONTELUKAST
     Indication: Product used for unknown indication
     Dosage: (10 MG) 1 TABLETS, QD (EVERY NIGHT)
     Route: 048
     Dates: start: 20230306
  10. ISTRADEFYLLINE [Concomitant]
     Active Substance: ISTRADEFYLLINE
     Indication: Product used for unknown indication
     Dosage: 1 TABLETS, QD (TAKE 1 TABLET BY MOUTH DAILY)
     Route: 048
     Dates: start: 20231102
  11. DOCONEXENT\ICOSAPENT [Concomitant]
     Active Substance: DOCONEXENT\ICOSAPENT
     Indication: Product used for unknown indication
     Dosage: 1 CAPSULES, QD (1000 MG)
     Route: 048
  12. OMEPRAZOLE [Concomitant]
     Active Substance: OMEPRAZOLE
     Indication: Product used for unknown indication
     Dosage: (40 MG) 1 CAPSULES, QD (IN MORNING)
     Route: 048
     Dates: start: 20231130
  13. SELEGILINE [Concomitant]
     Active Substance: SELEGILINE
     Indication: Product used for unknown indication
     Dosage: 1 TABLETS, BID (TAKE 1 TABLET (5 MG TOTAL) BY MOUTH 2 (TWO) TIMES PER DAY WITH MEALS WITH BREAKFAST
     Route: 048
     Dates: start: 20231211
  14. SIMVASTATIN [Concomitant]
     Active Substance: SIMVASTATIN
     Indication: Product used for unknown indication
     Dosage: 1 TABLETS, QD (TAKE 1 TABLET (10 MG TOTAL) BY MOUTH EVERY NIGHT)
     Route: 048
     Dates: start: 20210903
  15. HYDROXYZINE [Concomitant]
     Active Substance: HYDROXYZINE HYDROCHLORIDE
     Indication: Pruritus
     Dosage: 1 TABLETS, EVERY 8HR IF NEEDED UPTO 10 HRS
     Route: 048
  16. COLACE [Concomitant]
     Active Substance: DOCUSATE SODIUM
     Indication: Product used for unknown indication
     Route: 065
  17. AZELASTINE [Concomitant]
     Active Substance: AZELASTINE
     Indication: Product used for unknown indication
     Route: 065
     Dates: start: 20230330

REACTIONS (4)
  - Constipation [Unknown]
  - Walking aid user [Unknown]
  - Extrasystoles [Unknown]
  - Nausea [Unknown]

NARRATIVE: CASE EVENT DATE: 20231114
